FAERS Safety Report 9745212 (Version 2)
Quarter: 2014Q1

REPORT INFORMATION
  Report Type: Spontaneous
  Country: US (occurrence: US)
  Receive Date: 20131211
  Receipt Date: 20140227
  Transmission Date: 20141002
  Serious: Yes (Other)
  Sender: FDA-Public Use
  Company Number: US-PFIZER INC-2013353966

PATIENT
  Age: 51 Year
  Sex: Male
  Weight: 122.9 kg

DRUGS (1)
  1. MORPHINE SULFATE [Suspect]

REACTIONS (1)
  - Anaphylactic reaction [Unknown]
